FAERS Safety Report 8802714 (Version 1)
Quarter: 2012Q4

REPORT INFORMATION
  Report Type: 
  Country: FR (occurrence: FR)
  Receive Date: 20120921
  Receipt Date: 20120921
  Transmission Date: 20130627
  Serious: Yes (Hospitalization)
  Sender: FDA-Public Use
  Company Number: FR-009507513-1209FRA006451

PATIENT
  Age: 44 Year
  Sex: Male

DRUGS (3)
  1. NORSET [Suspect]
     Indication: AFFECTIVE DISORDER
     Dosage: UNK, qd
     Route: 048
     Dates: start: 20120730, end: 20120816
  2. TRILEPTAL [Suspect]
     Indication: AFFECTIVE DISORDER
     Dosage: 300 mg, bid
     Route: 048
     Dates: start: 20120801, end: 20120816
  3. PERMETHRIN [Suspect]
     Indication: LICE INFESTATION
     Dosage: UNK
     Route: 061
     Dates: start: 20120809, end: 20120812

REACTIONS (2)
  - Eosinophilia [Recovered/Resolved]
  - Rash [Recovered/Resolved]
